FAERS Safety Report 10064056 (Version 1)
Quarter: 2014Q2

REPORT INFORMATION
  Report Type: Spontaneous
  Country: US (occurrence: US)
  Receive Date: 20140408
  Receipt Date: 20140408
  Transmission Date: 20141212
  Serious: No
  Sender: FDA-Public Use
  Company Number: US-SHIRE-US201401034

PATIENT
  Age: 11 Year
  Sex: Male

DRUGS (1)
  1. VYVANSE [Suspect]
     Indication: PRODUCT USED FOR UNKNOWN INDICATION
     Dosage: 50 MG, UNKNOWN
     Route: 048

REACTIONS (6)
  - Educational problem [Unknown]
  - Stubbornness [Unknown]
  - Negativism [Unknown]
  - Impulsive behaviour [Unknown]
  - Growth accelerated [Unknown]
  - Aggression [Unknown]
